FAERS Safety Report 5897408-4 (Version None)
Quarter: 2008Q3

REPORT INFORMATION
  Report Type: 
  Country: None (occurrence: None)
  Receive Date: 20080925
  Receipt Date: 20080922
  Transmission Date: 20090109
  Serious: Yes (Death)
  Sender: FDA-Public Use
  Company Number: RU-JNJFOC-20080904737

PATIENT
  Age: 27 Year
  Sex: Male
  Weight: 75 kg

DRUGS (2)
  1. PALIPERIDONE [Suspect]
     Route: 048
  2. PALIPERIDONE [Suspect]
     Indication: SCHIZOPHRENIA
     Route: 048

REACTIONS (3)
  - COMPLETED SUICIDE [None]
  - SOMNOLENCE [None]
  - SUICIDE ATTEMPT [None]
